FAERS Safety Report 21028243 (Version 2)
Quarter: 2022Q3

REPORT INFORMATION
  Report Type: Report from Study
  Country: MX (occurrence: MX)
  Receive Date: 20220630
  Receipt Date: 20220707
  Transmission Date: 20221026
  Serious: Yes (Death)
  Sender: FDA-Public Use
  Company Number: MX-NOVARTISPH-NVSC2022MX149129

PATIENT
  Age: 86 Year
  Sex: Male
  Weight: 49 kg

DRUGS (1)
  1. ELTROMBOPAG OLAMINE [Suspect]
     Active Substance: ELTROMBOPAG OLAMINE
     Indication: Acute myelomonocytic leukaemia
     Dosage: 1 DOSAGE FORM (50 MG), QD
     Route: 048
     Dates: start: 20220607, end: 20220612

REACTIONS (2)
  - Oncologic complication [Fatal]
  - Off label use [Unknown]

NARRATIVE: CASE EVENT DATE: 20220607
